FAERS Safety Report 15172536 (Version 1)
Quarter: 2018Q3

REPORT INFORMATION
  Report Type: Spontaneous
  Country: US (occurrence: US)
  Receive Date: 20180622
  Receipt Date: 20180622
  Transmission Date: 20181010
  Serious: No
  Sender: FDA-Public Use
  Company Number: None

PATIENT
  Age: 75 Year
  Sex: Male

DRUGS (19)
  1. GEMFIBROZIL. [Concomitant]
     Active Substance: GEMFIBROZIL
  2. OYSCO [Concomitant]
  3. GLUCOSAMINE [Concomitant]
     Active Substance: GLUCOSAMINE
  4. VITAMIN C [Concomitant]
     Active Substance: ASCORBIC ACID
  5. ZYTIGA [Suspect]
     Active Substance: ABIRATERONE ACETATE
     Indication: PROSTATE CANCER
     Route: 048
     Dates: start: 20180327
  6. VALSARTAN. [Concomitant]
     Active Substance: VALSARTAN
  7. MOMETASONE FUROATE. [Concomitant]
     Active Substance: MOMETASONE FUROATE
  8. CHONDROITIN [Concomitant]
     Active Substance: CHONDROITIN
  9. ATORVASTATIN [Concomitant]
     Active Substance: ATORVASTATIN
  10. LORATADINE. [Concomitant]
     Active Substance: LORATADINE
  11. VENLAFAXINE [Concomitant]
     Active Substance: VENLAFAXINE HYDROCHLORIDE
  12. FLOMAX [Concomitant]
     Active Substance: TAMSULOSIN HYDROCHLORIDE
  13. NABUMETONE. [Concomitant]
     Active Substance: NABUMETONE
  14. METFORMIN [Concomitant]
     Active Substance: METFORMIN HYDROCHLORIDE
  15. BISOPROLOL FUMARATE. [Concomitant]
     Active Substance: BISOPROLOL FUMARATE
  16. JANUVIA [Concomitant]
     Active Substance: SITAGLIPTIN PHOSPHATE
  17. LANSOPRAZOLE. [Concomitant]
     Active Substance: LANSOPRAZOLE
  18. ACCUCHEK AVIVA [Concomitant]
  19. TAZAROTENE. [Concomitant]
     Active Substance: TAZAROTENE

REACTIONS (2)
  - Blood glucose increased [None]
  - Hyperhidrosis [None]
